FAERS Safety Report 4375053-X (Version None)
Quarter: 2004Q2

REPORT INFORMATION
  Report Type: 
  Country: None (occurrence: None)
  Receive Date: 20040603
  Receipt Date: 20040520
  Transmission Date: 20050107
  Serious: Yes (Other)
  Sender: FDA-Public Use
  Company Number: 206794

PATIENT
  Age: 26 Year
  Sex: Male

DRUGS (5)
  1. MABTHERA (RITUXIMAB) CONC FOR SOLUTION FOR INFUSION, 100 MG [Suspect]
     Indication: NON-HODGKIN'S LYMPHOMA
     Dosage: INTRATHECAL
     Route: 037
     Dates: start: 20040301
  2. CYCLOPHOSPHAMIDE [Concomitant]
  3. DOXORUBICIN HCL [Concomitant]
  4. VINCRISTINE [Concomitant]
  5. PREDNISONE [Concomitant]

REACTIONS (7)
  - DYSURIA [None]
  - HYPOTENSION [None]
  - PARAESTHESIA [None]
  - PARESIS [None]
  - RETROGRADE EJACULATION [None]
  - TACHYCARDIA [None]
  - TREMOR [None]
